FAERS Safety Report 19026499 (Version 1)
Quarter: 2021Q1

REPORT INFORMATION
  Report Type: Report from Study
  Country: US (occurrence: US)
  Receive Date: 20210318
  Receipt Date: 20210318
  Transmission Date: 20210420
  Serious: Yes (Hospitalization)
  Sender: FDA-Public Use
  Company Number: US-PACIRA-2021000209

PATIENT
  Age: 71 Year
  Sex: Female
  Weight: 45 kg

DRUGS (15)
  1. BUPIVACAINE. [Suspect]
     Active Substance: BUPIVACAINE
     Indication: POSTOPERATIVE ANALGESIA
     Dosage: 2019; 30ML
     Route: 065
  2. PERCOCET [Concomitant]
     Active Substance: ACETAMINOPHEN\OXYCODONE HYDROCHLORIDE
     Indication: POSTOPERATIVE ANALGESIA
     Dosage: 6:16PM, 9:53PM, ??1 TABLET 1
     Route: 065
     Dates: start: 20190723
  3. MORPHINE [Concomitant]
     Active Substance: MORPHINE
     Indication: INTRAOPERATIVE CARE
     Dosage: NOT REPORTED
     Route: 065
  4. OXYGEN. [Concomitant]
     Active Substance: OXYGEN
     Indication: INTRAOPERATIVE CARE
     Dosage: NOT REPORTED
     Route: 065
  5. PERCOCET [Concomitant]
     Active Substance: ACETAMINOPHEN\OXYCODONE HYDROCHLORIDE
     Indication: POSTOPERATIVE ANALGESIA
     Dosage: 1?2 TABLET Q4H PRN 1?2 TABLETS BY MOUTH EVERY 4 HOURS AS NEEDED FOR UP TO 10 DAYS AT DISCHARGE
     Route: 048
  6. PERCOCET [Concomitant]
     Active Substance: ACETAMINOPHEN\OXYCODONE HYDROCHLORIDE
     Indication: POSTOPERATIVE ANALGESIA
     Dosage: 5:35AM, 9:33AM??1 TABLET 1
     Route: 065
     Dates: start: 20190724
  7. ONDANSETRON [Concomitant]
     Active Substance: ONDANSETRON
     Indication: INTRAOPERATIVE CARE
     Dosage: NOT REPORTED
     Route: 065
  8. TYLENOL [Concomitant]
     Active Substance: ACETAMINOPHEN
     Indication: INTRAOPERATIVE CARE
     Dosage: NOT REPORTED
     Route: 042
  9. SUBLIMAZE [Concomitant]
     Active Substance: FENTANYL CITRATE
     Indication: POSTOPERATIVE ANALGESIA
     Dosage: 12:54PM, 1:00PM, 1:22PM, 1:27PM??25 MCG
     Route: 042
     Dates: start: 20190718
  10. MIDAZOLAM. [Concomitant]
     Active Substance: MIDAZOLAM
     Indication: INTRAOPERATIVE CARE
     Dosage: NOT REPORTED
     Route: 065
  11. EXPAREL [Suspect]
     Active Substance: BUPIVACAINE
     Indication: POSTOPERATIVE ANALGESIA
     Dosage: 2019 20ML EXPAREL AND 40ML SALINE TOTAL VOLUME 60ML
     Route: 065
  12. SALINE [Concomitant]
     Active Substance: SODIUM CHLORIDE
     Indication: POSTOPERATIVE ANALGESIA
     Dosage: 2019; 40ML WITH 20ML EXPAREL. TOTAL VOLUME 60ML
     Route: 065
  13. METOCLOPRAMI [Concomitant]
     Indication: INTRAOPERATIVE CARE
     Dosage: NOT REPORTED
     Route: 065
  14. OXYCONTIN [Concomitant]
     Active Substance: OXYCODONE HYDROCHLORIDE
     Indication: POSTOPERATIVE ANALGESIA
     Dosage: 8:31AM??12 HR TABLET 10 MG
     Route: 065
     Dates: start: 20190724
  15. DILAUDID [Concomitant]
     Active Substance: HYDROMORPHONE HYDROCHLORIDE
     Indication: POSTOPERATIVE ANALGESIA
     Dosage: 2:19PM, 2:10PM??0.2 MG
     Route: 042
     Dates: start: 20190718

REACTIONS (1)
  - Osteonecrosis [Unknown]
